FAERS Safety Report 4599128-5 (Version None)
Quarter: 2005Q1

REPORT INFORMATION
  Report Type: 
  Country: None (occurrence: None)
  Receive Date: 20050302
  Receipt Date: 20050216
  Transmission Date: 20050727
  Serious: Yes (Other)
  Sender: FDA-Public Use
  Company Number: A-CH2005-08886

PATIENT
  Age: 61 Year
  Sex: Female
  Weight: 85 kg

DRUGS (6)
  1. TRACLEER [Suspect]
     Indication: PULMONARY HYPERTENSION
     Dosage: 62.5 MG, BID; ORAL (SEE IMAGE)
     Route: 048
     Dates: start: 20041214, end: 20050111
  2. TRACLEER [Suspect]
     Indication: PULMONARY HYPERTENSION
     Dosage: 62.5 MG, BID; ORAL (SEE IMAGE)
     Route: 048
     Dates: start: 20050112, end: 20050208
  3. LEGALON            (SILYMARIN) [Concomitant]
  4. LEVOTHYROXINE SODIUM [Concomitant]
  5. SPIROBENE [Concomitant]
  6. MAGNOSOLV                          (MAGNESIUM CARBONATE, MAGNESIUM OXI [Concomitant]

REACTIONS (3)
  - ALANINE AMINOTRANSFERASE INCREASED [None]
  - ASPARTATE AMINOTRANSFERASE INCREASED [None]
  - BLOOD BILIRUBIN INCREASED [None]
